FAERS Safety Report 12830154 (Version 1)
Quarter: 2016Q4

REPORT INFORMATION
  Report Type: Spontaneous
  Country: US (occurrence: US)
  Receive Date: 20161007
  Receipt Date: 20161007
  Transmission Date: 20170207
  Serious: No
  Sender: FDA-Public Use
  Company Number: US-PRINSTON PHARMACEUTICAL INC.-2016PRN00218

PATIENT
  Age: 67 Year
  Sex: Female

DRUGS (1)
  1. VALSARTAN. [Suspect]
     Active Substance: VALSARTAN
     Dosage: UNK
     Dates: start: 20160806

REACTIONS (2)
  - Muscle spasms [Unknown]
  - Diarrhoea [Unknown]

NARRATIVE: CASE EVENT DATE: 201608
